FAERS Safety Report 9291920 (Version 2)
Quarter: 2013Q3

REPORT INFORMATION
  Report Type: Spontaneous
  Country: US (occurrence: US)
  Receive Date: 20130516
  Receipt Date: 20130910
  Transmission Date: 20140515
  Serious: No
  Sender: FDA-Public Use
  Company Number: US-BIOGENIDEC-2013BI043569

PATIENT
  Sex: Female

DRUGS (1)
  1. TYSABRI [Suspect]
     Indication: MULTIPLE SCLEROSIS
     Route: 042
     Dates: start: 20120625

REACTIONS (6)
  - Mobility decreased [Recovered/Resolved]
  - Weight increased [Unknown]
  - Muscular weakness [Unknown]
  - Paraesthesia [Unknown]
  - Headache [Recovered/Resolved]
  - Chest pain [Recovered/Resolved]
